FAERS Safety Report 17062002 (Version 2)
Quarter: 2019Q4

REPORT INFORMATION
  Report Type: Report from Study
  Country: None (occurrence: US)
  Receive Date: 20191121
  Receipt Date: 20191128
  Transmission Date: 20200122
  Serious: Yes (Hospitalization, Other)
  Sender: FDA-Public Use
  Company Number: US-ABBVIE-19K-163-3007000-00

PATIENT
  Age: 64 Year
  Sex: Male

DRUGS (1)
  1. DUOPA [Suspect]
     Active Substance: CARBIDOPA\LEVODOPA
     Indication: PARKINSON^S DISEASE
     Route: 050
     Dates: start: 2017, end: 201911

REACTIONS (7)
  - Vascular graft [Recovering/Resolving]
  - Post procedural complication [Unknown]
  - Device dislocation [Recovered/Resolved]
  - Stoma site infection [Recovered/Resolved]
  - Stoma site extravasation [Recovered/Resolved]
  - Stoma site erythema [Recovered/Resolved]
  - Abdominal distension [Recovered/Resolved]

NARRATIVE: CASE EVENT DATE: 20191112
